FAERS Safety Report 18442938 (Version 5)
Quarter: 2022Q3

REPORT INFORMATION
  Report Type: Report from Study
  Country: US (occurrence: US)
  Receive Date: 20201029
  Receipt Date: 20220919
  Transmission Date: 20221026
  Serious: Yes (Hospitalization, Other)
  Sender: FDA-Public Use
  Company Number: US-BAUSCH-BL-2020-031261

PATIENT
  Age: 68 Year
  Sex: Female
  Weight: 106.69 kg

DRUGS (2)
  1. XIFAXAN [Suspect]
     Active Substance: RIFAXIMIN
     Indication: Hepatic encephalopathy
     Dosage: STARTED AT LEAST FOUR YEARS OR MORE AGO
     Route: 048
  2. LACTULOSE [Concomitant]
     Active Substance: LACTULOSE
     Indication: Product used for unknown indication

REACTIONS (10)
  - Hospitalisation [Unknown]
  - Cataract [Recovered/Resolved]
  - Hepatic encephalopathy [Unknown]
  - Symptom recurrence [Unknown]
  - Internal haemorrhage [Unknown]
  - Coma [Unknown]
  - Malaise [Unknown]
  - Hypersomnia [Unknown]
  - Feeling abnormal [Unknown]
  - General physical health deterioration [Unknown]

NARRATIVE: CASE EVENT DATE: 20180101
